FAERS Safety Report 16514153 (Version 1)
Quarter: 2019Q3

REPORT INFORMATION
  Report Type: Spontaneous
  Country: US (occurrence: US)
  Receive Date: 20190701
  Receipt Date: 20190701
  Transmission Date: 20191004
  Serious: Yes (Death, Other)
  Sender: FDA-Public Use
  Company Number: US-BEH-2019103559

PATIENT
  Age: 76 Year
  Sex: Female

DRUGS (8)
  1. HUMATE-P [Suspect]
     Active Substance: HUMAN COAGULATION FACTOR VIII/VON WILLEBRAND FACTOR COMPLEX
     Dosage: 3630 INTERNATIONAL UNITS, AS DIRECTED
     Route: 042
     Dates: start: 20190216
  2. HUMATE-P [Suspect]
     Active Substance: HUMAN COAGULATION FACTOR VIII/VON WILLEBRAND FACTOR COMPLEX
     Indication: VON WILLEBRAND^S DISEASE
     Dosage: 1782 INTERNATIONAL UNIT, BID
     Route: 042
     Dates: start: 201902
  3. HUMATE-P [Suspect]
     Active Substance: HUMAN COAGULATION FACTOR VIII/VON WILLEBRAND FACTOR COMPLEX
     Indication: VON WILLEBRAND^S DISEASE
     Dosage: 1782 INTERNATIONAL UNIT, BID
     Route: 042
     Dates: start: 201902
  4. HUMATE-P [Suspect]
     Active Substance: HUMAN COAGULATION FACTOR VIII/VON WILLEBRAND FACTOR COMPLEX
     Dosage: 965 INTERNATIONAL UNIT, BID
     Route: 042
     Dates: start: 201902
  5. HUMATE-P [Suspect]
     Active Substance: HUMAN COAGULATION FACTOR VIII/VON WILLEBRAND FACTOR COMPLEX
     Dosage: 965 INTERNATIONAL UNIT, BID
     Route: 042
     Dates: start: 201902
  6. HUMATE-P [Suspect]
     Active Substance: HUMAN COAGULATION FACTOR VIII/VON WILLEBRAND FACTOR COMPLEX
     Dosage: 3630 INTERNATIONAL UNITS, AS DIRECTED
     Route: 042
     Dates: start: 20190216
  7. HUMATE-P [Suspect]
     Active Substance: HUMAN COAGULATION FACTOR VIII/VON WILLEBRAND FACTOR COMPLEX
     Dosage: 691 INTERNATIONAL UNIT, BID
     Route: 042
     Dates: start: 201902
  8. HUMATE-P [Suspect]
     Active Substance: HUMAN COAGULATION FACTOR VIII/VON WILLEBRAND FACTOR COMPLEX
     Dosage: 691 INTERNATIONAL UNIT, BID
     Route: 042
     Dates: start: 201902

REACTIONS (2)
  - Cardiac arrest [Fatal]
  - Cardiac operation [Unknown]

NARRATIVE: CASE EVENT DATE: 20190531
